FAERS Safety Report 7818024-0 (Version None)
Quarter: 2011Q4

REPORT INFORMATION
  Report Type: 
  Country: None (occurrence: None)
  Receive Date: 20111017
  Receipt Date: 20111011
  Transmission Date: 20120403
  Serious: Yes (Hospitalization, Other)
  Sender: FDA-Public Use
  Company Number: US-GILEAD-2011-0039601

PATIENT

DRUGS (8)
  1. REVATIO [Concomitant]
  2. METOPROLOL TARTRATE [Concomitant]
  3. LASIX [Concomitant]
  4. NEXIUM [Concomitant]
  5. LETAIRIS [Suspect]
     Indication: PRODUCT USED FOR UNKNOWN INDICATION
     Route: 048
     Dates: start: 20110512
  6. POTASSIUM CHLORIDE [Concomitant]
  7. LETAIRIS [Suspect]
     Route: 048
  8. ASPIRIN [Concomitant]

REACTIONS (5)
  - ANAEMIA [None]
  - GASTROINTESTINAL HAEMORRHAGE [None]
  - DIARRHOEA [None]
  - PANCYTOPENIA [None]
  - OEDEMA [None]
